FAERS Safety Report 13763835 (Version 6)
Quarter: 2018Q3

REPORT INFORMATION
  Report Type: Spontaneous
  Country: CA (occurrence: CA)
  Receive Date: 20170718
  Receipt Date: 20180926
  Transmission Date: 20181010
  Serious: Yes (Other)
  Sender: FDA-Public Use
  Company Number: CA-CELLTRION INC.-2017CA005914

PATIENT

DRUGS (2)
  1. MERCAPTOPURINE. [Concomitant]
     Active Substance: MERCAPTOPURINE
     Dosage: 50 MG, UNK
     Route: 065
  2. INFLECTRA [Suspect]
     Active Substance: INFLIXIMAB-DYYB
     Indication: CROHN^S DISEASE
     Dosage: 300 MG, CYCLIC EVERY 0,2,6, WEEKS THEN EVERY 8 WEEKS
     Route: 042
     Dates: start: 20170405

REACTIONS (11)
  - Wound haemorrhage [Not Recovered/Not Resolved]
  - Urine odour abnormal [Unknown]
  - Bone pain [Unknown]
  - Anorectal disorder [Not Recovered/Not Resolved]
  - Anorectal discomfort [Not Recovered/Not Resolved]
  - Pruritus [Not Recovered/Not Resolved]
  - Anal haemorrhage [Not Recovered/Not Resolved]
  - Seborrhoea [Unknown]
  - Asthenia [Unknown]
  - Anal fistula infection [Unknown]
  - Acne [Not Recovered/Not Resolved]

NARRATIVE: CASE EVENT DATE: 201704
